FAERS Safety Report 16615973 (Version 1)
Quarter: 2019Q3

REPORT INFORMATION
  Report Type: Spontaneous
  Country: US (occurrence: US)
  Receive Date: 20190610
  Receipt Date: 20190610
  Transmission Date: 20191004
  Serious: Yes (Hospitalization)
  Sender: FDA-Public Use
  Company Number: None

PATIENT
  Age: 52 Year
  Sex: Male
  Weight: 113.4 kg

DRUGS (2)
  1. GABAPENTIN. [Suspect]
     Active Substance: GABAPENTIN
     Route: 048
     Dates: start: 20180220
  2. MORPHINE [Suspect]
     Active Substance: MORPHINE
     Route: 048
     Dates: start: 20161028

REACTIONS (10)
  - Sedation [None]
  - Dialysis [None]
  - Unresponsive to stimuli [None]
  - Sepsis [None]
  - Acute kidney injury [None]
  - Arthralgia [None]
  - Blood potassium increased [None]
  - Fall [None]
  - Rhabdomyolysis [None]
  - Mental status changes [None]

NARRATIVE: CASE EVENT DATE: 20190327
